FAERS Safety Report 14103829 (Version 1)
Quarter: 2017Q4

REPORT INFORMATION
  Report Type: Spontaneous
  Country: US (occurrence: US)
  Receive Date: 20171018
  Receipt Date: 20171018
  Transmission Date: 20180321
  Serious: No
  Sender: FDA-Public Use
  Company Number: US-ELI_LILLY_AND_COMPANY-US201710004304

PATIENT
  Sex: Male

DRUGS (3)
  1. BASAGLAR [Suspect]
     Active Substance: INSULIN GLARGINE
     Indication: PRODUCT USED FOR UNKNOWN INDICATION
     Dosage: 25 IU, DAILY
     Route: 065
  2. METFORMIN [Concomitant]
     Active Substance: METFORMIN HYDROCHLORIDE
     Indication: PRODUCT USED FOR UNKNOWN INDICATION
     Dosage: UNK
  3. BASAGLAR [Suspect]
     Active Substance: INSULIN GLARGINE
     Dosage: 32 IU, DAILY
     Route: 065

REACTIONS (3)
  - Glycosylated haemoglobin increased [Unknown]
  - Injection site haemorrhage [Unknown]
  - Injection site pain [Unknown]
